FAERS Safety Report 9826134 (Version 1)
Quarter: 2014Q1

REPORT INFORMATION
  Report Type: Spontaneous
  Country: US (occurrence: US)
  Receive Date: 20140117
  Receipt Date: 20140117
  Transmission Date: 20141002
  Serious: Yes (Other)
  Sender: FDA-Public Use
  Company Number: US-ASTRAZENECA-2014SE02303

PATIENT
  Age: 74 Year
  Sex: Female
  Weight: 70.3 kg

DRUGS (7)
  1. SYMBICORT [Suspect]
     Indication: ASTHMA
     Dosage: 160 4.5MCG 2 PUFFS BID
     Route: 055
  2. PULMICORT FLEXHALER [Suspect]
     Indication: ASTHMA
     Dosage: 180MCG 1 PUFF BID
     Route: 055
     Dates: start: 20131213
  3. SINGULAIR [Concomitant]
     Indication: HYPERSENSITIVITY
  4. SINGULAIR [Concomitant]
     Indication: ALLERGIC SINUSITIS
  5. ALBUTEROL [Concomitant]
     Indication: ASTHMA
     Route: 055
  6. LASIX [Concomitant]
     Indication: FLUID OVERLOAD
  7. KLORCON M 20 [Concomitant]
     Indication: MINERAL SUPPLEMENTATION

REACTIONS (3)
  - Cardiac disorder [Not Recovered/Not Resolved]
  - Circumstance or information capable of leading to medication error [Not Recovered/Not Resolved]
  - Off label use [Not Recovered/Not Resolved]
